FAERS Safety Report 9667968 (Version 3)
Quarter: 2014Q2

REPORT INFORMATION
  Report Type: Spontaneous
  Country: US (occurrence: None)
  Receive Date: 20131101
  Receipt Date: 20140521
  Transmission Date: 20141212
  Serious: Yes (Life-Threatening, Hospitalization, Other)
  Sender: FDA-Public Use
  Company Number: 2013-US-002250

PATIENT
  Age: 22 Year
  Sex: Male
  Weight: 106.6 kg

DRUGS (4)
  1. XYREM [Suspect]
     Indication: NARCOLEPSY
     Route: 048
     Dates: start: 201306, end: 2013
  2. XYREM [Suspect]
     Indication: CATAPLEXY
     Route: 048
     Dates: start: 201306, end: 2013
  3. PRILOSEC (OMEPRAZOLE MAGNESIUM) [Concomitant]
  4. EFFEXOR (VENLAFAXINE HYDROCHLORIDE) UNKNOWN [Concomitant]

REACTIONS (16)
  - Loss of consciousness [None]
  - Unresponsive to stimuli [None]
  - Haemoptysis [None]
  - Dysarthria [None]
  - Mental disorder [None]
  - Hypertension [None]
  - Blood pressure decreased [None]
  - Headache [None]
  - Hyperhidrosis [None]
  - Confusional state [None]
  - Cataplexy [None]
  - Hypoaesthesia [None]
  - Pain [None]
  - Epilepsy [None]
  - Convulsion [None]
  - Cerebrovascular accident [None]
